FAERS Safety Report 22591697 (Version 1)
Quarter: 2023Q2

REPORT INFORMATION
  Report Type: Spontaneous
  Country: US (occurrence: None)
  Receive Date: 20230612
  Receipt Date: 20230612
  Transmission Date: 20230722
  Serious: No
  Sender: FDA-Public Use
  Company Number: US-ROCHE-3112404

PATIENT
  Age: 20 Year
  Sex: Female
  Weight: 115.77 kg

DRUGS (8)
  1. CELLCEPT [Suspect]
     Active Substance: MYCOPHENOLATE MOFETIL
     Indication: Product used for unknown indication
     Route: 048
  2. PREDNISONE [Suspect]
     Active Substance: PREDNISONE
     Indication: Product used for unknown indication
     Route: 048
  3. LUPKYNIS [Suspect]
     Active Substance: VOCLOSPORIN
     Indication: Lupus nephritis
     Dosage: BID ORAL (7.9MG), THERAPY START DATE: 02/FEB/2022
     Route: 048
  4. BUMETANIDE [Concomitant]
     Active Substance: BUMETANIDE
  5. POTASSIUM CHLORIDE [Concomitant]
     Active Substance: POTASSIUM CHLORIDE
  6. VALSARTAN [Concomitant]
     Active Substance: VALSARTAN
  7. ATENOLOL [Concomitant]
     Active Substance: ATENOLOL
  8. AMLODIPINE [Concomitant]
     Active Substance: AMLODIPINE BESYLATE

REACTIONS (7)
  - Nausea [Recovered/Resolved]
  - Vomiting [Recovered/Resolved]
  - Abdominal discomfort [Recovered/Resolved]
  - Back pain [Recovered/Resolved]
  - Diarrhoea [Recovered/Resolved]
  - Abdominal pain upper [Not Recovered/Not Resolved]
  - Decreased appetite [Recovered/Resolved]

NARRATIVE: CASE EVENT DATE: 20220201
